FAERS Safety Report 14676960 (Version 1)
Quarter: 2018Q1

REPORT INFORMATION
  Report Type: Spontaneous
  Country: FR (occurrence: FR)
  Receive Date: 20180324
  Receipt Date: 20180324
  Transmission Date: 20180509
  Serious: Yes (Other)
  Sender: FDA-Public Use
  Company Number: FR-CONCORDIA PHARMACEUTICALS INC.-E2B_00010659

PATIENT
  Age: 11 Month
  Sex: Female
  Weight: 9 kg

DRUGS (3)
  1. CELLCEPT [Suspect]
     Active Substance: MYCOPHENOLATE MOFETIL\MYCOPHENOLATE MOFETIL HYDROCHLORIDE
     Indication: EVANS SYNDROME
     Dosage: 67 MG/KG X1/JOUR
     Route: 048
     Dates: start: 20080829
  2. PREDNISOLONE. [Suspect]
     Active Substance: PREDNISOLONE
     Indication: EVANS SYNDROME
     Dosage: 1.67 MG/KG X1/JOUR
     Route: 048
     Dates: start: 20080616
  3. MABTHERA [Suspect]
     Active Substance: RITUXIMAB
     Indication: EVANS SYNDROME
     Dosage: 375 MG/M2X1/SEMAINE
     Route: 042
     Dates: start: 20080807, end: 20080828

REACTIONS (1)
  - Hypogammaglobulinaemia [Recovered/Resolved]

NARRATIVE: CASE EVENT DATE: 20081013
